FAERS Safety Report 15239272 (Version 1)
Quarter: 2018Q3

REPORT INFORMATION
  Report Type: Spontaneous
  Country: US (occurrence: US)
  Receive Date: 20180803
  Receipt Date: 20180803
  Transmission Date: 20181010
  Serious: Yes (Other)
  Sender: FDA-Public Use
  Company Number: US-THE MENTHOLATUM COMPANY-2053200

PATIENT
  Age: 89 Year
  Sex: Female
  Weight: 104.55 kg

DRUGS (1)
  1. MENTHOLATUM ORIGINAL [Suspect]
     Active Substance: CAMPHOR (NATURAL)\MENTHOL
     Route: 061

REACTIONS (2)
  - Anxiety [Unknown]
  - Lip exfoliation [Unknown]
